FAERS Safety Report 7446913-8 (Version None)
Quarter: 2011Q2

REPORT INFORMATION
  Report Type: 
  Country: None (occurrence: None)
  Receive Date: 20110429
  Receipt Date: 20101111
  Transmission Date: 20111010
  Serious: No
  Sender: FDA-Public Use
  Company Number: US-ASTRAZENECA-2010SE54027

PATIENT
  Age: 919 Month
  Sex: Female
  Weight: 68.9 kg

DRUGS (8)
  1. VITAMIN B-12 [Concomitant]
  2. CALCIUM [Concomitant]
  3. NEXIUM [Suspect]
     Route: 048
  4. PYRIDOXINE HCL [Concomitant]
  5. NORVASC [Concomitant]
  6. PAXIL [Concomitant]
  7. HYZAAR [Concomitant]
  8. NEXIUM [Suspect]
     Route: 048

REACTIONS (3)
  - TREMOR [None]
  - DYSPEPSIA [None]
  - INCORRECT DOSE ADMINISTERED [None]
